FAERS Safety Report 17935534 (Version 1)
Quarter: 2020Q2

REPORT INFORMATION
  Report Type: Spontaneous
  Country: US (occurrence: US)
  Receive Date: 20200624
  Receipt Date: 20200624
  Transmission Date: 20200714
  Serious: Yes (Death)
  Sender: FDA-Public Use
  Company Number: None

PATIENT
  Age: 58 Year
  Sex: Male

DRUGS (16)
  1. ALLOPURINOL. [Concomitant]
     Active Substance: ALLOPURINOL
  2. COLCHICINE. [Concomitant]
     Active Substance: COLCHICINE
  3. MAGNESIUM [Concomitant]
     Active Substance: MAGNESIUM
  4. SILDENAFIL. [Suspect]
     Active Substance: SILDENAFIL
     Indication: PULMONARY ARTERIAL HYPERTENSION
     Route: 048
     Dates: start: 20180109, end: 20200611
  5. ATORVASTATIN [Concomitant]
     Active Substance: ATORVASTATIN
  6. BUMETNIDE [Concomitant]
  7. GLIMIPRIDE [Concomitant]
     Active Substance: GLIMEPIRIDE
  8. TRESIBA FLEX [Concomitant]
  9. WARFARIN [Concomitant]
     Active Substance: WARFARIN
  10. LEVOTHYROXIN [Concomitant]
     Active Substance: LEVOTHYROXINE
  11. AMIODARONE [Concomitant]
     Active Substance: AMIODARONE
  12. FEXOFEN/PSE [Concomitant]
  13. PLAVIX [Concomitant]
     Active Substance: CLOPIDOGREL BISULFATE
  14. TYLENOL [Concomitant]
     Active Substance: ACETAMINOPHEN
  15. METOLAZONE. [Concomitant]
     Active Substance: METOLAZONE
  16. VICTOZA [Concomitant]
     Active Substance: LIRAGLUTIDE

REACTIONS (1)
  - Death [None]

NARRATIVE: CASE EVENT DATE: 20200611
